FAERS Safety Report 9710620 (Version 1)
Quarter: 2013Q4

REPORT INFORMATION
  Report Type: Spontaneous
  Country: US (occurrence: US)
  Receive Date: 20131126
  Receipt Date: 20131126
  Transmission Date: 20140711
  Serious: No
  Sender: FDA-Public Use
  Company Number: US-BRISTOL-MYERS SQUIBB COMPANY-18995407

PATIENT
  Age: 54 Year
  Sex: Female
  Weight: 87.98 kg

DRUGS (6)
  1. BYDUREON [Suspect]
     Indication: TYPE 2 DIABETES MELLITUS
     Route: 058
     Dates: start: 20130604
  2. METFORMIN HCL [Suspect]
  3. GLYBURIDE [Suspect]
  4. PRILOSEC [Concomitant]
  5. OMEPRAZOLE [Concomitant]
  6. XANAX [Concomitant]

REACTIONS (3)
  - Injection site nodule [Unknown]
  - Blood glucose increased [Unknown]
  - Chest pain [Unknown]
